FAERS Safety Report 21899969 (Version 1)
Quarter: 2023Q1

REPORT INFORMATION
  Report Type: Spontaneous
  Country: US (occurrence: US)
  Receive Date: 20230123
  Receipt Date: 20230123
  Transmission Date: 20230417
  Serious: No
  Sender: FDA-Public Use
  Company Number: US-NOVOPROD-1001707

PATIENT
  Sex: Female

DRUGS (1)
  1. OZEMPIC [Suspect]
     Active Substance: SEMAGLUTIDE
     Indication: Product used for unknown indication
     Dosage: 0.25 MG
     Route: 058
     Dates: start: 202210

REACTIONS (6)
  - Chest pain [Unknown]
  - Malaise [Unknown]
  - Stress [Unknown]
  - Off label use [Unknown]
  - Product label confusion [Unknown]
  - Wrong technique in device usage process [Unknown]
